FAERS Safety Report 6327547-5 (Version None)
Quarter: 2009Q3

REPORT INFORMATION
  Report Type: 
  Country: None (occurrence: None)
  Receive Date: 20090825
  Receipt Date: 20090817
  Transmission Date: 20100115
  Serious: Yes (Hospitalization)
  Sender: FDA-Public Use
  Company Number: GB-ELI_LILLY_AND_COMPANY-GB200907004389

PATIENT
  Sex: Female
  Weight: 112.2 kg

DRUGS (2)
  1. BYETTA [Suspect]
     Dosage: UNK, UNKNOWN
     Route: 058
     Dates: start: 20090101, end: 20090101
  2. INSULIN [Concomitant]
     Indication: TYPE 1 DIABETES MELLITUS
     Dosage: UNK, UNKNOWN

REACTIONS (7)
  - APPARENT DEATH [None]
  - ASTHENIA [None]
  - BACK PAIN [None]
  - GASTRITIS [None]
  - MALAISE [None]
  - OFF LABEL USE [None]
  - RENAL PAIN [None]
